FAERS Safety Report 9679230 (Version 1)
Quarter: 2013Q4

REPORT INFORMATION
  Report Type: Spontaneous
  Country: US (occurrence: US)
  Receive Date: 20131108
  Receipt Date: 20131108
  Transmission Date: 20140711
  Serious: Yes (Other)
  Sender: FDA-Public Use
  Company Number: US-JNJFOC-20131016565

PATIENT
  Age: 80 Year
  Sex: Female
  Weight: 81.19 kg

DRUGS (2)
  1. ZYRTEC IR 10MG TABLET [Suspect]
     Indication: URTICARIA
     Dosage: DOSAGE: HALF A TABLET
     Route: 048
  2. ZYRTEC IR 10MG TABLET [Suspect]
     Indication: URTICARIA
     Route: 048

REACTIONS (5)
  - Depression [Not Recovered/Not Resolved]
  - Adverse event [Unknown]
  - Off label use [Unknown]
  - Underdose [Unknown]
  - Somnolence [Not Recovered/Not Resolved]
